FAERS Safety Report 14150860 (Version 2)
Quarter: 2018Q1

REPORT INFORMATION
  Report Type: Report from Study
  Country: None (occurrence: US)
  Receive Date: 20171102
  Receipt Date: 20180313
  Transmission Date: 20180508
  Serious: Yes (Other)
  Sender: FDA-Public Use
  Company Number: US-ABBVIE-17K-163-2143066-00

PATIENT
  Age: 67 Year
  Sex: Male

DRUGS (2)
  1. HUMIRA [Suspect]
     Active Substance: ADALIMUMAB
     Indication: PSORIATIC ARTHROPATHY
     Dosage: MISSED FEW DOSES
     Route: 058
  2. HUMIRA [Suspect]
     Active Substance: ADALIMUMAB
     Route: 058

REACTIONS (7)
  - Nasopharyngitis [Unknown]
  - Pharyngeal haemorrhage [Unknown]
  - Psoriatic arthropathy [Unknown]
  - Myalgia [Unknown]
  - Nausea [Unknown]
  - Influenza [Unknown]
  - Ligament pain [Unknown]

NARRATIVE: CASE EVENT DATE: 2017
